FAERS Safety Report 9374018 (Version 1)
Quarter: 2013Q2

REPORT INFORMATION
  Report Type: Spontaneous
  Country: IN (occurrence: IN)
  Receive Date: 20130628
  Receipt Date: 20130628
  Transmission Date: 20140414
  Serious: Yes (Other)
  Sender: FDA-Public Use
  Company Number: IN-ACCORD-018252

PATIENT
  Age: 70 Year
  Sex: Male

DRUGS (1)
  1. ALLOPURINOL [Suspect]
     Indication: HYPERURICAEMIA

REACTIONS (2)
  - Granuloma annulare [Recovered/Resolved]
  - Self-medication [Unknown]
